FAERS Safety Report 7156648-7 (Version None)
Quarter: 2010Q4

REPORT INFORMATION
  Report Type: 
  Country: None (occurrence: None)
  Receive Date: 20101214
  Receipt Date: 20100510
  Transmission Date: 20110411
  Serious: No
  Sender: FDA-Public Use
  Company Number: US-ASTRAZENECA-2006UW19957

PATIENT
  Age: 75 Year
  Sex: Male
  Weight: 76.2 kg

DRUGS (3)
  1. CRESTOR [Suspect]
     Indication: HYPERCHOLESTEROLAEMIA
     Route: 048
     Dates: start: 20060101
  2. VITAMINS [Concomitant]
  3. IBUPROFEN [Concomitant]
     Indication: PAIN

REACTIONS (6)
  - ABDOMINAL PAIN [None]
  - DIARRHOEA [None]
  - HEPATIC ENZYME INCREASED [None]
  - INSOMNIA [None]
  - MYALGIA [None]
  - NECK PAIN [None]
